FAERS Safety Report 13236868 (Version 3)
Quarter: 2017Q1

REPORT INFORMATION
  Report Type: Spontaneous
  Country: JP (occurrence: JP)
  Receive Date: 20170215
  Receipt Date: 20170315
  Transmission Date: 20170428
  Serious: Yes (Hospitalization, Other)
  Sender: FDA-Public Use
  Company Number: JP-GILEAD-2017-0256904

PATIENT
  Sex: Female

DRUGS (5)
  1. EPADEL                             /01682402/ [Suspect]
     Active Substance: ICOSAPENT ETHYL
     Indication: ANAEMIA PROPHYLAXIS
     Dosage: 1800 MG, UNK
     Route: 065
     Dates: start: 20161027
  2. COPEGUS [Suspect]
     Active Substance: RIBAVIRIN
     Indication: HEPATITIS C
     Dosage: UNK
     Route: 065
     Dates: start: 20161027, end: 20170119
  3. NORVASC [Concomitant]
     Active Substance: AMLODIPINE BESYLATE
     Dosage: UNK
  4. SOVALDI [Suspect]
     Active Substance: SOFOSBUVIR
     Indication: HEPATITIS C
     Dosage: UNK
     Route: 065
     Dates: start: 20161027, end: 20170119
  5. URSO [Concomitant]
     Active Substance: URSODIOL
     Dosage: UNK

REACTIONS (4)
  - Ascites [Unknown]
  - Hepatitis C [Unknown]
  - Drug ineffective [Unknown]
  - Oedema peripheral [Unknown]

NARRATIVE: CASE EVENT DATE: 20161110
